FAERS Safety Report 7718921-0 (Version None)
Quarter: 2011Q3

REPORT INFORMATION
  Report Type: 
  Country: None (occurrence: None)
  Receive Date: 20110830
  Receipt Date: 20110819
  Transmission Date: 20111222
  Serious: Yes (Hospitalization)
  Sender: FDA-Public Use
  Company Number: US-GLAXOSMITHKLINE-A0747132A

PATIENT
  Age: 54 Year
  Sex: Female
  Weight: 94.5 kg

DRUGS (3)
  1. AVANDIA [Suspect]
     Indication: TYPE 2 DIABETES MELLITUS
     Dosage: 4MG TWICE PER DAY
     Route: 048
     Dates: start: 20060601, end: 20070301
  2. GLUCOTROL [Concomitant]
  3. GLUCOPHAGE [Concomitant]

REACTIONS (6)
  - VISUAL IMPAIRMENT [None]
  - DYSPNOEA [None]
  - CHEST PAIN [None]
  - MYOCARDIAL INFARCTION [None]
  - HEADACHE [None]
  - DEPRESSION [None]
